FAERS Safety Report 21041671 (Version 4)
Quarter: 2022Q3

REPORT INFORMATION
  Report Type: Spontaneous
  Country: US (occurrence: US)
  Receive Date: 20220705
  Receipt Date: 20220812
  Transmission Date: 20221026
  Serious: No
  Sender: FDA-Public Use
  Company Number: US-UNITED THERAPEUTICS-UNT-2022-014187

PATIENT
  Sex: Male
  Weight: 82.086 kg

DRUGS (6)
  1. REMODULIN [Suspect]
     Active Substance: TREPROSTINIL
     Indication: Pulmonary arterial hypertension
     Dosage: UNK, CONTINUING
     Route: 058
     Dates: start: 20220506
  2. REMODULIN [Suspect]
     Active Substance: TREPROSTINIL
     Dosage: 0.026 ?G/KG (PRE-FILLED WITH 2.8 ML PER CASSETTE; AT A RATE OF 27 MCL/HOUR), CONTINUING
     Route: 058
     Dates: start: 2022
  3. REMODULIN [Suspect]
     Active Substance: TREPROSTINIL
     Dosage: 0.028 ?G/KG (PRE-FILLED WITH 2.8 ML PER CASSETTE WITH PUMP RATE 28 NG/KG/MIN)
     Route: 058
     Dates: start: 2022, end: 2022
  4. REMODULIN [Suspect]
     Active Substance: TREPROSTINIL
     Dosage: 0.028 ?G/KG (PRE-FILLED WITH 3 ML PER CASSETTE WITH PUMP RATE 29 MCL/HR), CONTINUING
     Route: 058
     Dates: start: 2022
  5. REMODULIN [Suspect]
     Active Substance: TREPROSTINIL
     Indication: Pulmonary arterial hypertension
     Dosage: UNK, CONTINUING
     Route: 058
     Dates: start: 2022
  6. REMODULIN [Suspect]
     Active Substance: TREPROSTINIL
     Dosage: 0.036 ?G/KG (PRE-FILLED WITH 2 ML PER CASSETTE AT PUMP RATE OF 17 MCL/HR), CONTINUING
     Route: 058
     Dates: start: 2022

REACTIONS (8)
  - Infusion site erythema [Recovering/Resolving]
  - Infusion site swelling [Recovering/Resolving]
  - Device dislocation [Unknown]
  - Device wireless communication issue [Recovered/Resolved]
  - Device leakage [Unknown]
  - Device malfunction [Unknown]
  - Device failure [Unknown]
  - Device malfunction [Unknown]

NARRATIVE: CASE EVENT DATE: 20220101
